FAERS Safety Report 9466527 (Version 1)
Quarter: 2013Q3

REPORT INFORMATION
  Report Type: Spontaneous
  Country: US (occurrence: US)
  Receive Date: 20130820
  Receipt Date: 20130820
  Transmission Date: 20140515
  Serious: Yes (Other)
  Sender: FDA-Public Use
  Company Number: US-BAXTER-2013BAX032188

PATIENT
  Sex: Female
  Weight: 2.9 kg

DRUGS (3)
  1. MILRINONE LACTATE IN 5% DEXTROSE INJECTION [Suspect]
     Indication: SUPRAVENTRICULAR TACHYCARDIA
     Route: 042
  2. ADENOSINE [Suspect]
     Indication: SUPRAVENTRICULAR TACHYCARDIA
     Route: 065
  3. DIGOXIN [Suspect]
     Indication: SUPRAVENTRICULAR TACHYCARDIA
     Route: 065

REACTIONS (1)
  - Hypertension [Recovered/Resolved]
